FAERS Safety Report 17870609 (Version 7)
Quarter: 2021Q4

REPORT INFORMATION
  Report Type: Spontaneous
  Country: US (occurrence: US)
  Receive Date: 20200608
  Receipt Date: 20211122
  Transmission Date: 20220303
  Serious: No
  Sender: FDA-Public Use
  Company Number: US-PFIZER INC-2020221703

PATIENT
  Age: 64 Year
  Sex: Female
  Weight: 122.47 kg

DRUGS (7)
  1. LYRICA [Suspect]
     Active Substance: PREGABALIN
     Indication: Fibromyalgia
     Dosage: 75 MG THREE TIMES A DAY
     Dates: start: 2015, end: 202001
  2. LYRICA [Suspect]
     Active Substance: PREGABALIN
     Indication: Arthritis
  3. LYRICA [Suspect]
     Active Substance: PREGABALIN
     Indication: Myalgia
  4. ACETAMINOPHEN\CHLORZOXAZONE [Concomitant]
     Active Substance: ACETAMINOPHEN\CHLORZOXAZONE
     Dosage: UNK
     Dates: start: 1995
  5. ACETAMINOPHEN\CHLORZOXAZONE [Concomitant]
     Active Substance: ACETAMINOPHEN\CHLORZOXAZONE
     Dosage: 800 MG, 4X/DAY
     Dates: end: 202001
  6. TOVIAZ [Concomitant]
     Active Substance: FESOTERODINE FUMARATE
     Dosage: 4 MG, 2X/DAY (TAKES 4MG IN THE MORNING AND 4MG AT NIGHT)
     Dates: end: 202001
  7. DICLOFENAC SODIUM [Concomitant]
     Active Substance: DICLOFENAC SODIUM
     Indication: Arthritis
     Dosage: UNK

REACTIONS (12)
  - Memory impairment [Unknown]
  - Drug ineffective [Unknown]
  - Intentional product use issue [Unknown]
  - Feeling abnormal [Unknown]
  - Gait inability [Unknown]
  - Pain in extremity [Unknown]
  - Back pain [Unknown]
  - Neck pain [Unknown]
  - Nocturia [Unknown]
  - Insomnia [Unknown]
  - Gait disturbance [Unknown]
  - Arthralgia [Unknown]
